FAERS Safety Report 25688892 (Version 1)
Quarter: 2025Q3

REPORT INFORMATION
  Report Type: Report from Study
  Country: US (occurrence: US)
  Receive Date: 20250818
  Receipt Date: 20250818
  Transmission Date: 20251021
  Serious: Yes (Disabling)
  Sender: GILEAD
  Company Number: US-GILEAD-2025-0724548

PATIENT
  Sex: Male

DRUGS (1)
  1. SOFOSBUVIR\VELPATASVIR [Suspect]
     Active Substance: SOFOSBUVIR\VELPATASVIR
     Indication: Chronic hepatitis C
     Dosage: 1 DOSAGE FORM (400/100MG), QD
     Route: 048
     Dates: start: 20250627, end: 20250731

REACTIONS (3)
  - Swelling face [Unknown]
  - Pharyngeal ulceration [Unknown]
  - Noninfective gingivitis [Unknown]
